FAERS Safety Report 5504292-7 (Version None)
Quarter: 2007Q4

REPORT INFORMATION
  Report Type: 
  Country: None (occurrence: None)
  Receive Date: 20071101
  Receipt Date: 20071018
  Transmission Date: 20080405
  Serious: Yes (Death)
  Sender: FDA-Public Use
  Company Number: US-RANBAXY-2007US-10904

PATIENT

DRUGS (1)
  1. ISOTRETINOIN [Suspect]
     Indication: NEUROBLASTOMA
     Dosage: 20 MG, UNK

REACTIONS (2)
  - DISEASE PROGRESSION [None]
  - OFF LABEL USE [None]
